FAERS Safety Report 8103602-4 (Version None)
Quarter: 2011Q4

REPORT INFORMATION
  Report Type: 
  Country: None (occurrence: None)
  Receive Date: 20111222
  Receipt Date: 20111021
  Transmission Date: 20120403
  Serious: Yes (Other)
  Sender: FDA-Public Use
  Company Number: US-IGSA-IG956

PATIENT
  Age: 44 Year
  Sex: Female

DRUGS (3)
  1. PREVACID [Concomitant]
  2. FLEBOGAMMA [Suspect]
     Indication: ANAEMIA HAEMOLYTIC AUTOIMMUNE
     Dosage: 20 G IV, EVERY 42 DAYS
     Route: 042
  3. FOLIC ACID [Concomitant]

REACTIONS (2)
  - CHEST PAIN [None]
  - ARTHRALGIA [None]
